FAERS Safety Report 11557585 (Version 3)
Quarter: 2015Q4

REPORT INFORMATION
  Report Type: Spontaneous
  Country: US (occurrence: US)
  Receive Date: 20150926
  Receipt Date: 20151009
  Transmission Date: 20160304
  Serious: Yes (Other)
  Sender: FDA-Public Use
  Company Number: US-JNJFOC-20150909926

PATIENT
  Age: 68 Year
  Sex: Female
  Weight: 61.24 kg

DRUGS (5)
  1. METOPROLOL [Concomitant]
     Active Substance: METOPROLOL
     Indication: HEART RATE
     Dosage: DISPOSITION DATE:11-SEP-2015
     Route: 065
  2. METOPROLOL [Concomitant]
     Active Substance: METOPROLOL
     Indication: AUTOIMMUNE THYROIDITIS
     Dosage: DISPOSITION DATE:11-SEP-2015
     Route: 065
  3. TYLENOL REGULAR STRENGTH [Suspect]
     Active Substance: ACETAMINOPHEN
     Indication: MIGRAINE
     Dosage: EVERY 5 HOURS/ AS NEEDED
     Route: 048
     Dates: end: 20150812
  4. LEVOTHYROXINE. [Concomitant]
     Active Substance: LEVOTHYROXINE
     Indication: AUTOIMMUNE THYROIDITIS
     Route: 065
  5. PROBIOTICS [Concomitant]
     Active Substance: PROBIOTICS NOS
     Indication: PROPHYLAXIS
     Route: 065

REACTIONS (2)
  - Abdominal pain upper [Recovered/Resolved]
  - Intestinal obstruction [Recovered/Resolved]
